FAERS Safety Report 25426061 (Version 1)
Quarter: 2025Q2

REPORT INFORMATION
  Report Type: Spontaneous
  Country: US (occurrence: US)
  Receive Date: 20250612
  Receipt Date: 20250612
  Transmission Date: 20250717
  Serious: Yes (Other)
  Sender: AUROBINDO
  Company Number: US-AUROBINDO-AUR-APL-2022-055255

PATIENT
  Age: 66 Year
  Sex: Male

DRUGS (1)
  1. VALGANCICLOVIR [Suspect]
     Active Substance: VALGANCICLOVIR
     Indication: Cytomegalovirus infection
     Dosage: 900 MILLIGRAM, ONCE A DAY
     Route: 065

REACTIONS (1)
  - Drug ineffective [Unknown]
